FAERS Safety Report 5161689-5 (Version None)
Quarter: 2006Q4

REPORT INFORMATION
  Report Type: 
  Country: None (occurrence: None)
  Receive Date: 20061130
  Receipt Date: 20060626
  Transmission Date: 20070319
  Serious: No
  Sender: FDA-Public Use
  Company Number: US-BRISTOL-MYERS SQUIBB COMPANY-13427174

PATIENT
  Age: 40 Year
  Sex: Male
  Weight: 86 kg

DRUGS (4)
  1. METFORMIN HCL [Suspect]
     Indication: DIABETES MELLITUS
     Route: 048
  2. ZOCOR [Concomitant]
  3. IBUPROFEN [Concomitant]
  4. MULTI-VITAMIN [Concomitant]

REACTIONS (1)
  - BLOOD GLUCOSE INCREASED [None]
